FAERS Safety Report 13252958 (Version 1)
Quarter: 2017Q1

REPORT INFORMATION
  Report Type: Spontaneous
  Country: US (occurrence: US)
  Receive Date: 20170220
  Receipt Date: 20170220
  Transmission Date: 20170428
  Serious: Yes (Hospitalization, Other)
  Sender: FDA-Public Use
  Company Number: US-BAYER-2017-028121

PATIENT
  Age: 65 Year
  Sex: Male
  Weight: 92.97 kg

DRUGS (3)
  1. CITRACAL MAXIMUM [Suspect]
     Active Substance: CALCIUM CITRATE\CHOLECALCIFEROL
     Indication: NUTRITIONAL SUPPLEMENTATION
     Dosage: 1 DF, QD
     Route: 048
     Dates: end: 20170209
  2. TYLENOL [Concomitant]
     Active Substance: ACETAMINOPHEN
  3. ALEVE [Suspect]
     Active Substance: NAPROXEN SODIUM
     Indication: PAIN
     Dosage: 1 DF, UNK
     Route: 048
     Dates: start: 20170124, end: 20170124

REACTIONS (6)
  - Lip swelling [Recovered/Resolved with Sequelae]
  - Hypersensitivity [Recovered/Resolved]
  - Urticaria [Recovered/Resolved with Sequelae]
  - Drug hypersensitivity [Recovered/Resolved with Sequelae]
  - Mouth swelling [Recovered/Resolved with Sequelae]
  - Toxicity to various agents [Unknown]

NARRATIVE: CASE EVENT DATE: 20170124
